FAERS Safety Report 13216163 (Version 1)
Quarter: 2017Q1

REPORT INFORMATION
  Report Type: Report from Study
  Country: None (occurrence: AT)
  Receive Date: 20170209
  Receipt Date: 20170209
  Transmission Date: 20170428
  Serious: Yes (Death)
  Sender: FDA-Public Use
  Company Number: AT-ABBVIE-17P-009-1865137-00

PATIENT
  Age: 64 Year
  Sex: Male

DRUGS (1)
  1. DUODOPA [Suspect]
     Active Substance: CARBIDOPA\LEVODOPA
     Indication: PARKINSON^S DISEASE
     Dosage: 16H THERAPY:MD 12; CR DAILY: 5.8, ED: 3
     Route: 050

REACTIONS (2)
  - Cerebral haemorrhage [Fatal]
  - Fall [Fatal]

NARRATIVE: CASE EVENT DATE: 201702
